FAERS Safety Report 7040634-1 (Version None)
Quarter: 2010Q4

REPORT INFORMATION
  Report Type: 
  Country: None (occurrence: None)
  Receive Date: 20101012
  Receipt Date: 20101006
  Transmission Date: 20110411
  Serious: Yes (Death)
  Sender: FDA-Public Use
  Company Number: US-AMGEN-QUU443769

PATIENT
  Sex: Male

DRUGS (3)
  1. NPLATE [Suspect]
     Indication: IDIOPATHIC THROMBOCYTOPENIC PURPURA
     Dates: start: 20090701
  2. CORTICOSTEROIDS [Concomitant]
  3. IMMU-G [Concomitant]
     Route: 042
     Dates: start: 20090626

REACTIONS (1)
  - DEATH [None]
